FAERS Safety Report 6730217-2 (Version None)
Quarter: 2010Q2

REPORT INFORMATION
  Report Type: 
  Country: None (occurrence: None)
  Receive Date: 20100518
  Receipt Date: 20090720
  Transmission Date: 20101027
  Serious: No
  Sender: FDA-Public Use
  Company Number: US-TYCO HEALTHCARE/MALLINCKRODT-T200901409

PATIENT
  Sex: Female
  Weight: 108.84 kg

DRUGS (14)
  1. METHYLIN ER [Suspect]
     Dosage: 40 MG, QD (2 TABLETS EVERY MORNING)
  2. PROTONIX                           /01263201/ [Concomitant]
  3. AVANDIA                            /01445801/ [Concomitant]
  4. METFORMIN [Concomitant]
  5. COZAAR [Concomitant]
  6. RANITIDINE [Concomitant]
  7. LEXAPRO [Concomitant]
  8. RESTORIL                           /00393701/ [Concomitant]
  9. SEROQUEL [Concomitant]
  10. LORAZEPAM [Concomitant]
  11. MIRTAZAPINE [Concomitant]
  12. CYMBALTA [Concomitant]
  13. LANTUS [Concomitant]
  14. EPIDRA [Concomitant]

REACTIONS (2)
  - DRUG INEFFECTIVE [None]
  - MEDICATION RESIDUE [None]
